FAERS Safety Report 8022888-8 (Version None)
Quarter: 2012Q1

REPORT INFORMATION
  Report Type: 
  Country: None (occurrence: None)
  Receive Date: 20120104
  Receipt Date: 20111229
  Transmission Date: 20120608
  Serious: No
  Sender: FDA-Public Use
  Company Number: CN-CTI_01426_2011

PATIENT
  Sex: Male

DRUGS (6)
  1. HAEMOCOAGULASE (HAEMOCOAGULASE) [Concomitant]
     Indication: HAEMOSTASIS
     Route: 042
     Dates: start: 20111102, end: 20111110
  2. CEFOTIAM (CEFOTIAM) [Concomitant]
     Indication: INFECTION PROPHYLAXIS
     Route: 042
     Dates: start: 20111102, end: 20111109
  3. FURBENCILLIN SODIUM (NO PREF. NAME) [Concomitant]
     Indication: INFECTION PROPHYLAXIS
     Route: 042
     Dates: start: 20111102, end: 20111109
  4. CUROSURF [Suspect]
     Indication: NEONATAL RESPIRATORY DISTRESS SYNDROME
     Route: 039
     Dates: start: 20111102, end: 20111102
  5. ANTIINFECTIVES (ANTIINFECTIVES) [Concomitant]
     Dosage: DF
  6. VITAMIN K NOS (VITAMIN K NOS) [Concomitant]
     Dosage: DF

REACTIONS (2)
  - PULMONARY HAEMORRHAGE [None]
  - DISSEMINATED INTRAVASCULAR COAGULATION [None]
